FAERS Safety Report 7813228-5 (Version None)
Quarter: 2011Q4

REPORT INFORMATION
  Report Type: 
  Country: None (occurrence: None)
  Receive Date: 20111013
  Receipt Date: 20111003
  Transmission Date: 20120403
  Serious: Yes (Hospitalization, Other)
  Sender: FDA-Public Use
  Company Number: US-MILLENNIUM PHARMACEUTICALS, INC.-2011-03854

PATIENT
  Sex: Female
  Weight: 84.807 kg

DRUGS (6)
  1. SIMVASTATIN [Concomitant]
     Indication: PRODUCT USED FOR UNKNOWN INDICATION
     Dosage: 10 MG, UNK
     Route: 048
  2. CYMBALTA [Concomitant]
     Indication: PRODUCT USED FOR UNKNOWN INDICATION
     Dosage: 20 MG, BID
     Route: 048
  3. LISINOPRIL [Concomitant]
     Indication: PRODUCT USED FOR UNKNOWN INDICATION
     Dosage: 20 MG, QD
     Route: 048
  4. VELCADE [Suspect]
     Indication: MULTIPLE MYELOMA
     Dosage: 2.4 MG, 2/WEEK
     Route: 042
     Dates: start: 20110418, end: 20110609
  5. MELPHALAN HYDROCHLORIDE [Suspect]
     Indication: MULTIPLE MYELOMA
     Dosage: 16 MG, QD
     Route: 048
     Dates: start: 20110418, end: 20110604
  6. PREDNISONE [Suspect]
     Indication: MULTIPLE MYELOMA
     Dosage: 100 MG, QD
     Route: 048
     Dates: start: 20110418, end: 20110604

REACTIONS (3)
  - FALL [None]
  - HERPES ZOSTER [None]
  - FIBULA FRACTURE [None]
